FAERS Safety Report 5487036-7 (Version None)
Quarter: 2007Q4

REPORT INFORMATION
  Report Type: 
  Country: None (occurrence: None)
  Receive Date: 20071016
  Receipt Date: 20071009
  Transmission Date: 20080405
  Serious: Yes (Hospitalization)
  Sender: FDA-Public Use
  Company Number: PHBS2007NO05587

PATIENT
  Age: 18 Year
  Sex: Male

DRUGS (4)
  1. EMSELEX EXTENDED RELEASE [Suspect]
     Indication: PROSTATITIS
     Dosage: 7.5 MG/D
     Route: 048
  2. NORFLOXACIN [Concomitant]
  3. ANTIASTHMATICS [Concomitant]
  4. AVELOX [Suspect]
     Indication: INFECTION

REACTIONS (4)
  - ALANINE AMINOTRANSFERASE INCREASED [None]
  - ASPARTATE AMINOTRANSFERASE INCREASED [None]
  - BLOOD CREATINE PHOSPHOKINASE INCREASED [None]
  - RHABDOMYOLYSIS [None]
